FAERS Safety Report 21870922 (Version 1)
Quarter: 2023Q1

REPORT INFORMATION
  Report Type: Spontaneous
  Country: GB (occurrence: GB)
  Receive Date: 20230117
  Receipt Date: 20230117
  Transmission Date: 20230418
  Serious: Yes (Hospitalization, Other)
  Sender: FDA-Public Use
  Company Number: GB-BAYER-2023P002682

PATIENT
  Age: 80 Year
  Sex: Male

DRUGS (1)
  1. EYLEA [Suspect]
     Active Substance: AFLIBERCEPT
     Indication: Product used for unknown indication
     Dosage: UNK SOLUTION FOR INJECTION; STRENGTH: 40 MG/ML
     Dates: start: 20220820

REACTIONS (2)
  - Drug reaction with eosinophilia and systemic symptoms [Unknown]
  - Rash [Unknown]
